FAERS Safety Report 26080891 (Version 1)
Quarter: 2025Q4

REPORT INFORMATION
  Report Type: Spontaneous
  Country: US (occurrence: US)
  Receive Date: 20251124
  Receipt Date: 20251124
  Transmission Date: 20260117
  Serious: No
  Sender: ROCHE
  Company Number: US-ROCHE-10000434485

PATIENT
  Age: 44 Year
  Sex: Female
  Weight: 63.5 kg

DRUGS (2)
  1. CELLCEPT [Suspect]
     Active Substance: MYCOPHENOLATE MOFETIL
     Indication: Systemic scleroderma
     Dosage: 3 TABLETS IN THE MORNING 3 TABLETS AT NIGHT FOR TOTAL 3000MG DAILY
     Route: 048
     Dates: start: 202108
  2. PRILOSEC OTC [Concomitant]
     Active Substance: OMEPRAZOLE MAGNESIUM
     Indication: Systemic scleroderma
     Dosage: 20MG ONCE IN THE MORNING, 20MG ONCE AT NIGHT TOTAL=40MG DAILY
     Route: 048
     Dates: start: 202107

REACTIONS (4)
  - Hypotension [Not Recovered/Not Resolved]
  - Drug effect less than expected [Recovered/Resolved]
  - Heart rate increased [Not Recovered/Not Resolved]
  - Off label use [Unknown]

NARRATIVE: CASE EVENT DATE: 20211201
